FAERS Safety Report 8155108-4 (Version None)
Quarter: 2012Q1

REPORT INFORMATION
  Report Type: 
  Country: None (occurrence: None)
  Receive Date: 20120221
  Receipt Date: 20120213
  Transmission Date: 20120608
  Serious: Yes (Other)
  Sender: FDA-Public Use
  Company Number: JP-VERTEX PHARMACEUTICALS INC.-AE-2012-002365

PATIENT
  Age: 45 Year
  Sex: Male

DRUGS (9)
  1. REBETOL [Concomitant]
     Indication: HEPATITIS C
     Route: 048
     Dates: start: 20111220, end: 20120104
  2. ALLOPURINOL [Concomitant]
  3. CLARITIN [Concomitant]
  4. TELAVIC (TELAPREVIR) [Suspect]
     Indication: HEPATITIS C
     Route: 048
     Dates: start: 20111220, end: 20111229
  5. RABEPRAZOLE SODIUM [Concomitant]
  6. EPADEL S [Concomitant]
  7. PEG-INTRON [Concomitant]
     Indication: HEPATITIS C
     Route: 058
     Dates: start: 20111220, end: 20111227
  8. MICARDIS [Concomitant]
  9. LIVALO [Concomitant]

REACTIONS (1)
  - RENAL IMPAIRMENT [None]
